FAERS Safety Report 9192706 (Version 1)
Quarter: 2013Q1

REPORT INFORMATION
  Report Type: Spontaneous
  Country: CA (occurrence: None)
  Receive Date: 20130325
  Receipt Date: 20130325
  Transmission Date: 20140127
  Serious: Yes (Other)
  Sender: FDA-Public Use
  Company Number: 2013AP003648

PATIENT
  Sex: Male

DRUGS (10)
  1. OLANZAPINE (OLANZAPINE) [Suspect]
     Route: 048
  2. PAROXETINE (PAROXETINE) [Suspect]
  3. CLOMIPRAMINE (CLOMIPRAMINE) [Suspect]
     Route: 048
  4. SERTRALINE (SERTRALINE) (SERTRALINE) [Concomitant]
  5. VALPROIC ACID (VALPROIC ACID) [Concomitant]
  6. QUETIAPINE (QUETIAPINE) (QUETIAPINE) [Concomitant]
  7. CITALOPRAM (CITALOPRAM) [Concomitant]
  8. ESCITALOPRAM (ESCITALOPRAM) [Concomitant]
  9. HALOPERIDOL (HALOPERIDOL) (HALOPERIDOL) [Concomitant]
  10. DONEPEZIL (DONEPEZIL) [Concomitant]

REACTIONS (6)
  - Hyperhidrosis [None]
  - Abdominal pain upper [None]
  - Parkinsonism [None]
  - Drug ineffective [None]
  - Circadian rhythm sleep disorder [None]
  - Drug tolerance decreased [None]
